FAERS Safety Report 5919435-0 (Version None)
Quarter: 2008Q4

REPORT INFORMATION
  Report Type: 
  Country: None (occurrence: None)
  Receive Date: 20081015
  Receipt Date: 20081007
  Transmission Date: 20090506
  Serious: Yes (Hospitalization)
  Sender: FDA-Public Use
  Company Number: PHBS2007JP11520

PATIENT
  Sex: Female
  Weight: 48 kg

DRUGS (4)
  1. GLEEVEC [Suspect]
     Indication: CHRONIC MYELOID LEUKAEMIA
     Dosage: 400 MG/D
     Route: 048
     Dates: start: 20020618, end: 20061104
  2. GLEEVEC [Suspect]
     Dosage: 200 MG/D
     Route: 048
     Dates: start: 20070615, end: 20070727
  3. GLEEVEC [Suspect]
     Dosage: 400 MG/D
     Route: 048
     Dates: start: 20070728
  4. DAIO-KANZO-TO [Concomitant]
     Indication: CONSTIPATION
     Route: 048
     Dates: start: 19960326, end: 20061104

REACTIONS (5)
  - ABDOMINAL PAIN [None]
  - DRUG EXPOSURE DURING PREGNANCY [None]
  - NORMAL NEWBORN [None]
  - THREATENED LABOUR [None]
  - VOMITING [None]
